FAERS Safety Report 6998696-3 (Version None)
Quarter: 2010Q3

REPORT INFORMATION
  Report Type: 
  Country: None (occurrence: None)
  Receive Date: 20100920
  Receipt Date: 20100715
  Transmission Date: 20110219
  Serious: No
  Sender: FDA-Public Use
  Company Number: US-ASTRAZENECA-2009SE32595

PATIENT
  Age: 448 Month
  Sex: Male
  Weight: 81.6 kg

DRUGS (2)
  1. SEROQUEL [Suspect]
     Indication: SCHIZOPHRENIA
     Route: 048
     Dates: start: 20040101, end: 20090201
  2. ZYPREXA [Concomitant]
     Dates: start: 20000101

REACTIONS (1)
  - TYPE 2 DIABETES MELLITUS [None]
